FAERS Safety Report 13391229 (Version 2)
Quarter: 2017Q2

REPORT INFORMATION
  Report Type: Spontaneous
  Country: GB (occurrence: GB)
  Receive Date: 20170331
  Receipt Date: 20170623
  Transmission Date: 20170830
  Serious: Yes (Life-Threatening, Hospitalization, Other)
  Sender: FDA-Public Use
  Company Number: GB-TEVA-753301ROM

PATIENT
  Age: 70 Year
  Sex: Female

DRUGS (11)
  1. FENTANYL. [Suspect]
     Active Substance: FENTANYL
     Indication: BACK PAIN
     Dosage: 14 PATCHES OF 100MICROG
     Route: 062
     Dates: start: 201407
  2. FENTANYL. [Suspect]
     Active Substance: FENTANYL
     Dosage: 100MICROG; 50MICROG WAS ADDED IN DEC2010
     Route: 062
     Dates: start: 2007
  3. FENTANYL. [Suspect]
     Active Substance: FENTANYL
     Indication: INTENTIONAL OVERDOSE
     Dosage: 25MICROG; INCREASED TO 100MICROG WITHIN 7 WEEKS
     Route: 062
     Dates: start: 200710
  4. FENTANYL. [Suspect]
     Active Substance: FENTANYL
     Dosage: 50MICROG WAS ADDED IN DEC2010
     Route: 062
     Dates: start: 201012
  5. ORAMORPH [Concomitant]
     Active Substance: MORPHINE SULFATE
     Dosage: NO MORE THAN 20ML PER DAY
     Route: 048
     Dates: start: 2014
  6. MIRTAZAPINE. [Suspect]
     Active Substance: MIRTAZAPINE
     Indication: BACK PAIN
     Dosage: 15 MILLIGRAM DAILY; 15 MG
     Dates: start: 201405
  7. ORAMORPH [Concomitant]
     Active Substance: MORPHINE SULFATE
     Indication: BACK PAIN
     Route: 048
     Dates: start: 2009
  8. TRAMADOL. [Concomitant]
     Active Substance: TRAMADOL
     Indication: BACK PAIN
     Route: 065
  9. MIRTAZAPINE. [Suspect]
     Active Substance: MIRTAZAPINE
     Indication: BACK PAIN
     Dosage: 2 TABLETS OF 45 MG
     Route: 065
  10. FENTANYL. [Suspect]
     Active Substance: FENTANYL
     Dosage: 100 MICROGRAM DAILY;
     Route: 062
     Dates: start: 2014
  11. OXYCODONE [Concomitant]
     Active Substance: OXYCODONE
     Indication: BACK PAIN
     Dosage: 20 MILLIGRAM DAILY;
     Route: 065

REACTIONS (3)
  - Suicide attempt [Recovered/Resolved]
  - Sedation [Recovered/Resolved]
  - Intentional overdose [Unknown]

NARRATIVE: CASE EVENT DATE: 201407
